FAERS Safety Report 5142764-8 (Version None)
Quarter: 2006Q4

REPORT INFORMATION
  Report Type: 
  Country: None (occurrence: None)
  Receive Date: 20061027
  Receipt Date: 20061012
  Transmission Date: 20070319
  Serious: Yes (Hospitalization)
  Sender: FDA-Public Use
  Company Number: US200608005993

PATIENT
  Sex: Female

DRUGS (5)
  1. HUMATROPE [Suspect]
     Indication: GROWTH HORMONE DEFICIENCY
     Dosage: 0.1 MG, DAILY (1/D),
     Dates: start: 20060701, end: 20060801
  2. HUMATROPEN (HUMATROPEN) [Concomitant]
  3. ANTIBIOTICS [Concomitant]
  4. HUMATROPE REGIMENT [Concomitant]
  5. ANTIFUNGALS [Concomitant]

REACTIONS (5)
  - BRONCHOPULMONARY ASPERGILLOSIS [None]
  - CONDITION AGGRAVATED [None]
  - MEDICAL DEVICE COMPLICATION [None]
  - MYOPIA [None]
  - PHARMACEUTICAL PRODUCT COMPLAINT [None]
